FAERS Safety Report 9239746 (Version 4)
Quarter: 2015Q1

REPORT INFORMATION
  Report Type: Spontaneous
  Country: US (occurrence: US)
  Receive Date: 20130418
  Receipt Date: 20150309
  Transmission Date: 20150721
  Serious: No
  Sender: FDA-Public Use
  Company Number: US-009507513-1304USA008317

PATIENT
  Sex: Male

DRUGS (1)
  1. PROPECIA [Suspect]
     Active Substance: FINASTERIDE
     Indication: ANDROGENETIC ALOPECIA
     Dosage: 1 MG, QD
     Route: 048
     Dates: start: 20010904, end: 2010

REACTIONS (11)
  - Headache [Unknown]
  - Cognitive disorder [Not Recovered/Not Resolved]
  - Libido decreased [Unknown]
  - Psychiatric symptom [Not Recovered/Not Resolved]
  - Sexual dysfunction [Not Recovered/Not Resolved]
  - Erectile dysfunction [Unknown]
  - Blood testosterone decreased [Unknown]
  - Grief reaction [Not Recovered/Not Resolved]
  - Depression [Not Recovered/Not Resolved]
  - Sperm concentration decreased [Unknown]
  - Anxiety [Not Recovered/Not Resolved]

NARRATIVE: CASE EVENT DATE: 2002
